FAERS Safety Report 13094572 (Version 1)
Quarter: 2017Q1

REPORT INFORMATION
  Report Type: Spontaneous
  Country: None (occurrence: US)
  Receive Date: 20170106
  Receipt Date: 20170106
  Transmission Date: 20170428
  Serious: No
  Sender: FDA-Public Use
  Company Number: US-MATRIXX INITIATIVES, INC.-1061653

PATIENT
  Age: 68 Year
  Sex: Female
  Weight: 127.27 kg

DRUGS (1)
  1. ZICAM COLD REMEDY LOZENGES (PLUS MENTHOL) [Suspect]
     Active Substance: MENTHOL\ZINC ACETATE\ZINC GLUCONATE
     Indication: NASOPHARYNGITIS
     Route: 048

REACTIONS (1)
  - Ageusia [None]
